FAERS Safety Report 21764479 (Version 1)
Quarter: 2022Q4

REPORT INFORMATION
  Report Type: Spontaneous
  Country: US (occurrence: US)
  Receive Date: 20221222
  Receipt Date: 20221222
  Transmission Date: 20230112
  Serious: No
  Sender: FDA-Public Use
  Company Number: US-JNJFOC-20221241735

PATIENT
  Age: 82 Year
  Sex: Male

DRUGS (1)
  1. ERLEADA [Suspect]
     Active Substance: APALUTAMIDE
     Indication: Prostate cancer
     Route: 048

REACTIONS (4)
  - Pain [Recovering/Resolving]
  - Asthenia [Unknown]
  - Irritability [Unknown]
  - Anaemia [Unknown]

NARRATIVE: CASE EVENT DATE: 20221201
